FAERS Safety Report 10017828 (Version 1)
Quarter: 2014Q1

REPORT INFORMATION
  Report Type: Spontaneous
  Country: US (occurrence: None)
  Receive Date: 20140313
  Receipt Date: 20140313
  Transmission Date: 20141002
  Serious: Yes (Other)
  Sender: FDA-Public Use
  Company Number: None

PATIENT
  Age: 65 Year
  Sex: Female
  Weight: 48.99 kg

DRUGS (15)
  1. ALENDRONATE [Suspect]
     Indication: OSTEOPOROSIS
     Route: 048
     Dates: start: 20130128, end: 20131029
  2. PROGESTERONE [Concomitant]
  3. ESTRADIOL [Concomitant]
  4. DHEA [Concomitant]
  5. MULTI-VITAMIN/MINERAL [Concomitant]
  6. ESTER VIT. C [Concomitant]
  7. L-LYSINE [Concomitant]
  8. GARLIC [Concomitant]
  9. CAYENNE PEPPER [Concomitant]
  10. CHROMIUM [Concomitant]
  11. GELATIN [Concomitant]
  12. MAGNESIUM [Concomitant]
  13. CALCIUM [Concomitant]
  14. PHOSPHORUS [Concomitant]
  15. VIT D [Concomitant]

REACTIONS (13)
  - Poor quality sleep [None]
  - Arthralgia [None]
  - Pain [None]
  - Pain [None]
  - Myalgia [None]
  - Dyspepsia [None]
  - Chest discomfort [None]
  - Muscle spasms [None]
  - Arthritis [None]
  - Muscle rupture [None]
  - Impaired healing [None]
  - Burning sensation [None]
  - Insomnia [None]
